FAERS Safety Report 4541987-6 (Version None)
Quarter: 2004Q4

REPORT INFORMATION
  Report Type: 
  Country: None (occurrence: None)
  Receive Date: 20041230
  Receipt Date: 20041202
  Transmission Date: 20050328
  Serious: Yes (Life-Threatening, Hospitalization)
  Sender: FDA-Public Use
  Company Number: US-BOEHRINGER INGELHEIM PHARMMACEUTICALS, INC.-2004-BP-13189BP

PATIENT
  Age: 73 Year
  Sex: Male

DRUGS (13)
  1. SPIRIVA [Suspect]
     Indication: CHRONIC OBSTRUCTIVE AIRWAYS DISEASE
     Route: 055
     Dates: start: 20040611
  2. SPIRIVA [Suspect]
     Indication: EMPHYSEMA
  3. SPIRIVA [Suspect]
     Indication: BRONCHITIS CHRONIC
  4. VERAPAMIL [Concomitant]
  5. DIGITALIS [Concomitant]
  6. COUMADIN [Concomitant]
  7. PULMICORT [Concomitant]
  8. OXYGEN [Concomitant]
     Dosage: 2 LITERS VIA NASAL CANULA, PRN
  9. CLARINEX [Concomitant]
  10. NASACORT [Concomitant]
  11. CALAN [Concomitant]
  12. LANOXIN [Concomitant]
  13. HYTRIN [Concomitant]

REACTIONS (3)
  - INFECTED SKIN ULCER [None]
  - LACERATION [None]
  - SKIN ULCER [None]
